FAERS Safety Report 5292486-8 (Version None)
Quarter: 2007Q2

REPORT INFORMATION
  Report Type: 
  Country: None (occurrence: None)
  Receive Date: 20070410
  Receipt Date: 20070326
  Transmission Date: 20071010
  Serious: Yes (Death)
  Sender: FDA-Public Use
  Company Number: TW-GENENTECH-239576

PATIENT
  Age: 45 Year
  Sex: Female

DRUGS (3)
  1. HERCEPTIN [Suspect]
     Indication: BREAST CANCER
     Dosage: UNK, UNK
     Dates: start: 20060419, end: 20060419
  2. TAXOTERE [Suspect]
     Indication: BREAST CANCER
     Dates: start: 20060215, end: 20060415
  3. DOXORUBICIN HCL [Suspect]
     Indication: BREAST CANCER
     Dates: start: 20060215, end: 20060415

REACTIONS (3)
  - ALANINE AMINOTRANSFERASE INCREASED [None]
  - ASPARTATE AMINOTRANSFERASE INCREASED [None]
  - HEPATIC FAILURE [None]
